FAERS Safety Report 17484243 (Version 1)
Quarter: 2020Q1

REPORT INFORMATION
  Report Type: Spontaneous
  Country: NL (occurrence: NL)
  Receive Date: 20200302
  Receipt Date: 20200302
  Transmission Date: 20200409
  Serious: Yes (Hospitalization)
  Sender: FDA-Public Use
  Company Number: NL-ELI_LILLY_AND_COMPANY-NL202002009907

PATIENT
  Sex: Male
  Weight: 54 kg

DRUGS (3)
  1. ZYPADHERA [Suspect]
     Active Substance: OLANZAPINE PAMOATE
     Indication: SCHIZOPHRENIA
     Dosage: 1 DOSAGE FORM, MONTHLY (1/M)
     Route: 065
     Dates: start: 20200205, end: 20200205
  2. ZYPADHERA [Suspect]
     Active Substance: OLANZAPINE PAMOATE
     Indication: SCHIZOPHRENIA
     Dosage: 1 DOSAGE FORM, MONTHLY (1/M)
     Route: 065
     Dates: start: 20200205, end: 20200205
  3. ZYPADHERA [Suspect]
     Active Substance: OLANZAPINE PAMOATE
     Indication: SCHIZOPHRENIA
     Dosage: 1 DOSAGE FORM, MONTHLY (1/M)
     Route: 065
     Dates: start: 20200205, end: 20200205

REACTIONS (4)
  - Miosis [Recovered/Resolved]
  - Agitation [Recovered/Resolved]
  - Tachycardia [Recovered/Resolved]
  - Loss of consciousness [Recovered/Resolved]
